FAERS Safety Report 5313762-6 (Version None)
Quarter: 2007Q2

REPORT INFORMATION
  Report Type: 
  Country: None (occurrence: None)
  Receive Date: 20070426
  Receipt Date: 20070406
  Transmission Date: 20071010
  Serious: Yes (Other)
  Sender: FDA-Public Use
  Company Number: JPKYO-S-20070014FU

PATIENT
  Age: 68 Year
  Sex: Female

DRUGS (7)
  1. NAVELBINE [Suspect]
     Indication: BREAST CANCER
     Dates: start: 20060424, end: 20061225
  2. MUCOSTA [Concomitant]
  3. GASTER [Concomitant]
  4. HUSTAGIN [Concomitant]
  5. METHYLEPHEDRINE HYDROCHLORIDE [Concomitant]
  6. LAXOBERON [Concomitant]
  7. PL GRAN [Concomitant]

REACTIONS (1)
  - OPTIC NEURITIS [None]
